FAERS Safety Report 23861431 (Version 1)
Quarter: 2024Q2

REPORT INFORMATION
  Report Type: Spontaneous
  Country: US (occurrence: US)
  Receive Date: 20240516
  Receipt Date: 20240516
  Transmission Date: 20240715
  Serious: No
  Sender: FDA-Public Use
  Company Number: US-ELI_LILLY_AND_COMPANY-US202405006155

PATIENT
  Sex: Female

DRUGS (1)
  1. VERZENIO [Suspect]
     Active Substance: ABEMACICLIB
     Indication: Breast cancer
     Dosage: UNK UNK, UNKNOWN
     Route: 065

REACTIONS (14)
  - Anxiety [Unknown]
  - Abdominal pain upper [Unknown]
  - Depression [Unknown]
  - Insomnia [Unknown]
  - Dry skin [Unknown]
  - Sensitive skin [Unknown]
  - Weight increased [Unknown]
  - Bone density decreased [Unknown]
  - Liver disorder [Unknown]
  - Lung disorder [Unknown]
  - Immunodeficiency [Unknown]
  - Arthralgia [Unknown]
  - Anaemia [Unknown]
  - Alopecia [Unknown]
